FAERS Safety Report 8979276 (Version 2)
Quarter: 2013Q1

REPORT INFORMATION
  Report Type: Spontaneous
  Country: US (occurrence: US)
  Receive Date: 20121221
  Receipt Date: 20130208
  Transmission Date: 20140127
  Serious: No
  Sender: FDA-Public Use
  Company Number: US-PFIZER INC-2012322439

PATIENT
  Age: 58 Year
  Sex: Male

DRUGS (9)
  1. CELEBREX [Suspect]
     Indication: PAIN
     Dosage: 200 MG, 1X/DAY
     Route: 048
     Dates: start: 20121022
  2. CELEBREX [Suspect]
     Indication: OSTEOARTHRITIS
  3. LISINOPRIL [Concomitant]
     Dosage: 5 MG, 1X/DAY
     Route: 048
  4. NITROGLYCERIN [Concomitant]
     Indication: CHEST PAIN
     Dosage: 0.4 MG, TAKE 1 SL Q 5 MIN NOT TO EXCEED 3 IN 15 MINUTES
     Route: 060
  5. COUMADINE [Concomitant]
     Indication: CEREBROVASCULAR ACCIDENT
     Dosage: 3 AND ? TABLETS DAILY
     Route: 048
  6. DIGOXIN [Concomitant]
     Dosage: 0.25 MG, 1X/DAY
  7. METOPROLOL SUCCINATE [Concomitant]
     Indication: BLOOD PRESSURE
     Dosage: 150 MG, 1X/DAY
  8. DOCUSATE SODIUM [Concomitant]
     Dosage: 100 MG TWICE DAILY AS NEEDED
  9. HYDROCODONE-ACETAMINOPHEN [Concomitant]
     Dosage: 10/325 UNITS UNKNOWN, EVERY SIX HOURS AS NEEDED

REACTIONS (1)
  - Cardiac disorder [Unknown]
